FAERS Safety Report 11380796 (Version 1)
Quarter: 2015Q3

REPORT INFORMATION
  Report Type: Spontaneous
  Country: US (occurrence: US)
  Receive Date: 20150814
  Receipt Date: 20150814
  Transmission Date: 20151125
  Serious: No
  Sender: FDA-Public Use
  Company Number: US-JNJFOC-20150602329

PATIENT
  Age: 77 Year
  Sex: Male
  Weight: 81.65 kg

DRUGS (3)
  1. IMODIUM A-D [Suspect]
     Active Substance: LOPERAMIDE HYDROCHLORIDE
     Route: 048
  2. STOOL SOFTENER [Concomitant]
     Active Substance: DOCUSATE CALCIUM
     Dosage: IN THE MORNING
     Route: 065
  3. IMODIUM A-D [Suspect]
     Active Substance: LOPERAMIDE HYDROCHLORIDE
     Indication: ACCIDENT
     Route: 048
     Dates: start: 20150602, end: 20150602

REACTIONS (3)
  - Incorrect dose administered [Unknown]
  - Constipation [Unknown]
  - Incorrect product storage [Unknown]
